FAERS Safety Report 4536740-3 (Version None)
Quarter: 2004Q4

REPORT INFORMATION
  Report Type: 
  Country: None (occurrence: None)
  Receive Date: 20041220
  Receipt Date: 20041020
  Transmission Date: 20050328
  Serious: No
  Sender: FDA-Public Use
  Company Number: 2004AP05447

PATIENT
  Age: 47 Year
  Sex: Female

DRUGS (1)
  1. ZOLADEX [Suspect]
     Indication: BREAST CANCER
     Dosage: 3.6 MG SQ
     Route: 058
     Dates: start: 19960401, end: 19970501

REACTIONS (1)
  - BASEDOW'S DISEASE [None]
